FAERS Safety Report 22188167 (Version 1)
Quarter: 2023Q2

REPORT INFORMATION
  Report Type: Other
  Country: US (occurrence: US)
  Receive Date: 20230408
  Receipt Date: 20230408
  Transmission Date: 20230721
  Serious: Yes (Death)
  Sender: FDA-Public Use
  Company Number: US-ALVOGEN-2023089782

PATIENT
  Age: 33 Year
  Sex: Female

DRUGS (7)
  1. GABAPENTIN [Suspect]
     Active Substance: GABAPENTIN
     Indication: Suicide attempt
  2. OXYCODONE [Suspect]
     Active Substance: OXYCODONE
     Indication: Suicide attempt
  3. BUPROPION [Suspect]
     Active Substance: BUPROPION
     Indication: Suicide attempt
  4. TRAZODONE [Suspect]
     Active Substance: TRAZODONE HYDROCHLORIDE
     Indication: Suicide attempt
  5. QUETIAPINE [Suspect]
     Active Substance: QUETIAPINE
     Indication: Suicide attempt
  6. MORPHINE [Suspect]
     Active Substance: MORPHINE
     Indication: Suicide attempt
  7. DULOXETINE [Suspect]
     Active Substance: DULOXETINE
     Indication: Suicide attempt

REACTIONS (1)
  - Completed suicide [Fatal]
